FAERS Safety Report 17162154 (Version 1)
Quarter: 2019Q4

REPORT INFORMATION
  Report Type: Spontaneous
  Country: DE (occurrence: DE)
  Receive Date: 20191217
  Receipt Date: 20191217
  Transmission Date: 20200122
  Serious: Yes (Other)
  Sender: FDA-Public Use
  Company Number: DE-TEVA-801405GER

PATIENT
  Age: 0 Year
  Sex: Female
  Weight: 2.58 kg

DRUGS (1)
  1. VENLAFAXINE [Suspect]
     Active Substance: VENLAFAXINE HYDROCHLORIDE
     Indication: DEPRESSION
     Dosage: 75 MILLIGRAM DAILY;
     Route: 064
     Dates: start: 20160727, end: 20170328

REACTIONS (4)
  - Restlessness [Recovered/Resolved]
  - Foetal exposure during pregnancy [Unknown]
  - Myoclonus [Recovered/Resolved]
  - Hyperreflexia [Recovered/Resolved]
